FAERS Safety Report 25042965 (Version 3)
Quarter: 2025Q1

REPORT INFORMATION
  Report Type: Spontaneous
  Country: US (occurrence: US)
  Receive Date: 20250305
  Receipt Date: 20250327
  Transmission Date: 20250408
  Serious: No
  Sender: CALLIDITAS THERAPEUTICS AB
  Company Number: US-Calliditas-2025CAL00516

PATIENT
  Age: 49 Year
  Sex: Male

DRUGS (9)
  1. TARPEYO [Suspect]
     Active Substance: BUDESONIDE
     Indication: IgA nephropathy
     Route: 048
     Dates: start: 20250207
  2. ZYRTEC [Concomitant]
     Active Substance: CETIRIZINE HYDROCHLORIDE
  3. MONTELUKAST [Concomitant]
     Active Substance: MONTELUKAST
  4. OMEPRAZOLE [Concomitant]
     Active Substance: OMEPRAZOLE
  5. ATENOLOL [Concomitant]
     Active Substance: ATENOLOL
  6. LISINOPRIL [Concomitant]
     Active Substance: LISINOPRIL
  7. NIFEDIPINE [Concomitant]
     Active Substance: NIFEDIPINE
  8. MELATONIN [Concomitant]
     Active Substance: MELATONIN
  9. POTASSIUM [Concomitant]
     Active Substance: POTASSIUM

REACTIONS (2)
  - Gastrooesophageal reflux disease [Recovered/Resolved]
  - Condition aggravated [Recovered/Resolved]

NARRATIVE: CASE EVENT DATE: 20250220
